FAERS Safety Report 13913932 (Version 1)
Quarter: 2017Q3

REPORT INFORMATION
  Report Type: Spontaneous
  Country: US (occurrence: US)
  Receive Date: 20170829
  Receipt Date: 20170829
  Transmission Date: 20171127
  Serious: No
  Sender: FDA-Public Use
  Company Number: US-PFIZER INC-2017369418

PATIENT
  Age: 59 Year
  Sex: Male
  Weight: 92.99 kg

DRUGS (2)
  1. ADVIL [Suspect]
     Active Substance: IBUPROFEN
     Indication: BACK PAIN
  2. ADVIL [Suspect]
     Active Substance: IBUPROFEN
     Indication: ARTHRALGIA
     Dosage: TWO 200MG LIQUIGELS, AS NEEDED
     Route: 048

REACTIONS (3)
  - Oral discomfort [Recovered/Resolved]
  - Poor quality drug administered [Unknown]
  - Product physical issue [Recovered/Resolved]

NARRATIVE: CASE EVENT DATE: 20170812
